FAERS Safety Report 17729952 (Version 2)
Quarter: 2020Q2

REPORT INFORMATION
  Report Type: Spontaneous
  Country: US (occurrence: US)
  Receive Date: 20200430
  Receipt Date: 20200513
  Transmission Date: 20200714
  Serious: No
  Sender: FDA-Public Use
  Company Number: US-BLUEPRINT MEDICINES CORPORATION-SP-US-2020-000368

PATIENT
  Age: 86 Year
  Sex: Male

DRUGS (1)
  1. AYVAKIT [Suspect]
     Active Substance: AVAPRITINIB
     Indication: GASTROINTESTINAL STROMAL TUMOUR
     Route: 048
     Dates: start: 20200307

REACTIONS (11)
  - Anaemia [Unknown]
  - Haematocrit abnormal [Unknown]
  - Asthenia [Unknown]
  - Nausea [Recovered/Resolved]
  - Localised oedema [Unknown]
  - Haemoglobin abnormal [Unknown]
  - White blood cell count abnormal [Unknown]
  - Fatigue [Unknown]
  - Red blood cell count abnormal [Unknown]
  - Red cell distribution width abnormal [Unknown]
  - Dizziness [Unknown]

NARRATIVE: CASE EVENT DATE: 20200428
